FAERS Safety Report 6010645-3 (Version None)
Quarter: 2008Q4

REPORT INFORMATION
  Report Type: 
  Country: None (occurrence: None)
  Receive Date: 20081218
  Receipt Date: 20081211
  Transmission Date: 20090506
  Serious: Yes (Other)
  Sender: FDA-Public Use
  Company Number: IT-WYE-H07254108

PATIENT
  Sex: Female

DRUGS (1)
  1. SUPRAX [Suspect]
     Indication: BRONCHITIS
     Dosage: 400 MG PER DAY
     Route: 048
     Dates: start: 20070307, end: 20070314

REACTIONS (1)
  - PEMPHIGUS [None]
